FAERS Safety Report 24838887 (Version 1)
Quarter: 2025Q1

REPORT INFORMATION
  Report Type: Spontaneous
  Country: US (occurrence: US)
  Receive Date: 20250114
  Receipt Date: 20250114
  Transmission Date: 20250409
  Serious: No
  Sender: SANOFI AVENTIS
  Company Number: US-SA-2025SA010475

PATIENT
  Sex: Female

DRUGS (16)
  1. DUPIXENT [Suspect]
     Active Substance: DUPILUMAB
     Indication: Chronic obstructive pulmonary disease
     Dosage: 300 MG QOW
     Route: 058
  2. ATORVASTATIN [Concomitant]
     Active Substance: ATORVASTATIN
  3. CARVEDILOL [Concomitant]
     Active Substance: CARVEDILOL
  4. CELECOXIB [Concomitant]
     Active Substance: CELECOXIB
  5. DIAZEPAM [Concomitant]
     Active Substance: DIAZEPAM
  6. FUROSEMIDE [Concomitant]
     Active Substance: FUROSEMIDE
  7. LEVOCETIRIZINE [Concomitant]
     Active Substance: LEVOCETIRIZINE
  8. LISINOPRIL [Concomitant]
     Active Substance: LISINOPRIL
  9. LORATADINE [Concomitant]
     Active Substance: LORATADINE
  10. MONTELUKAST [Concomitant]
     Active Substance: MONTELUKAST
  11. OMEPRAZOLE [Concomitant]
     Active Substance: OMEPRAZOLE
  12. PREDNISONE [Concomitant]
     Active Substance: PREDNISONE
  13. ROPINIROLE HYDROCHLORIDE [Concomitant]
     Active Substance: ROPINIROLE HYDROCHLORIDE
  14. SERTRALINE HYDROCHLORIDE [Concomitant]
     Active Substance: SERTRALINE HYDROCHLORIDE
  15. TRELEGY ELLIPTA [Concomitant]
     Active Substance: FLUTICASONE FUROATE\UMECLIDINIUM BROMIDE\VILANTEROL TRIFENATATE
  16. TRIAMTERENE [Concomitant]
     Active Substance: TRIAMTERENE

REACTIONS (1)
  - Chronic obstructive pulmonary disease [Not Recovered/Not Resolved]
